FAERS Safety Report 12769276 (Version 2)
Quarter: 2016Q3

REPORT INFORMATION
  Report Type: Report from Study
  Country: ES (occurrence: ES)
  Receive Date: 20160921
  Receipt Date: 20160922
  Transmission Date: 20161109
  Serious: Yes (Other)
  Sender: FDA-Public Use
  Company Number: ES-ABBVIE-16K-144-1731482-00

PATIENT
  Age: 61 Year
  Sex: Male

DRUGS (1)
  1. DUODOPA [Suspect]
     Active Substance: CARBIDOPA\LEVODOPA
     Indication: PARKINSON^S DISEASE
     Dosage: DM: 18 ML; DC: 3 ML/H; DE: 2ML
     Route: 050
     Dates: start: 20150821

REACTIONS (6)
  - Joint dislocation [Recovered/Resolved]
  - Freezing phenomenon [Unknown]
  - Pain in jaw [Unknown]
  - Fall [Recovered/Resolved]
  - On and off phenomenon [Recovered/Resolved]
  - Syncope [Recovered/Resolved]

NARRATIVE: CASE EVENT DATE: 20160913
